FAERS Safety Report 13466561 (Version 1)
Quarter: 2017Q2

REPORT INFORMATION
  Report Type: Spontaneous
  Country: ES (occurrence: ES)
  Receive Date: 20170421
  Receipt Date: 20170421
  Transmission Date: 20170830
  Serious: Yes (Hospitalization, Other)
  Sender: FDA-Public Use
  Company Number: ES-LUPIN PHARMACEUTICALS INC.-2017-01775

PATIENT
  Age: 8 Year
  Sex: Male

DRUGS (2)
  1. CEFOTAXIME INJECTION [Suspect]
     Active Substance: CEFOTAXIME SODIUM
     Indication: OSTEOMYELITIS
     Dosage: 200 MG/KG, QD
     Route: 042
  2. CLOXACILLIN [Suspect]
     Active Substance: CLOXACILLIN
     Indication: OSTEOMYELITIS
     Dosage: 150 MG/KG, QD
     Route: 042

REACTIONS (1)
  - Drug reaction with eosinophilia and systemic symptoms [Recovered/Resolved]
